FAERS Safety Report 11421009 (Version 2)
Quarter: 2015Q3

REPORT INFORMATION
  Report Type: Report from Study
  Country: US (occurrence: US)
  Receive Date: 20150826
  Receipt Date: 20150923
  Transmission Date: 20151125
  Serious: Yes (Hospitalization)
  Sender: FDA-Public Use
  Company Number: US-JNJFOC-20150819320

PATIENT
  Age: 71 Year
  Sex: Male

DRUGS (6)
  1. FLUTICASONE [Concomitant]
     Active Substance: FLUTICASONE\FLUTICASONE PROPIONATE
  2. IMBRUVICA [Suspect]
     Active Substance: IBRUTINIB
     Indication: CHRONIC LYMPHOCYTIC LEUKAEMIA
     Route: 048
     Dates: start: 20150216, end: 20150802
  3. FLONASE [Concomitant]
     Active Substance: FLUTICASONE PROPIONATE
  4. MEGACE [Concomitant]
     Active Substance: MEGESTROL ACETATE
  5. CLARITIN [Concomitant]
     Active Substance: LORATADINE
     Indication: CHRONIC LYMPHOCYTIC LEUKAEMIA
  6. ALLOPURINOL. [Concomitant]
     Active Substance: ALLOPURINOL

REACTIONS (1)
  - Subdural hygroma [Recovering/Resolving]

NARRATIVE: CASE EVENT DATE: 20150802
